FAERS Safety Report 7204339-6 (Version None)
Quarter: 2010Q4

REPORT INFORMATION
  Report Type: 
  Country: None (occurrence: None)
  Receive Date: 20101230
  Receipt Date: 20101228
  Transmission Date: 20110411
  Serious: No
  Sender: FDA-Public Use
  Company Number: BR-ROCHE-750265

PATIENT
  Sex: Female
  Weight: 69 kg

DRUGS (2)
  1. ROACUTAN [Suspect]
     Route: 048
     Dates: start: 20101212, end: 20101219
  2. GRACIAL [Concomitant]
     Indication: CONTRACEPTION
     Dates: start: 20101212

REACTIONS (2)
  - NO ADVERSE EVENT [None]
  - PREGNANCY [None]
